FAERS Safety Report 8287611-0 (Version None)
Quarter: 2012Q2

REPORT INFORMATION
  Report Type: 
  Country: None (occurrence: None)
  Receive Date: 20120416
  Receipt Date: 20120410
  Transmission Date: 20120825
  Serious: Yes (Hospitalization, Other)
  Sender: FDA-Public Use
  Company Number: PHFR2010GB05561

PATIENT
  Sex: Female

DRUGS (11)
  1. RANITIDINE [Concomitant]
     Dosage: 150 MG, UNK
  2. CLOZARIL [Suspect]
     Dosage: UNK UKN, UNK
     Route: 048
     Dates: start: 20110608
  3. HYOSCINE [Concomitant]
     Dosage: 30 UG, TID
     Route: 048
  4. CLOZARIL [Suspect]
     Indication: SCHIZOPHRENIA
     Dosage: UNK UKN, UNK
     Route: 048
     Dates: start: 20010426
  5. ACETYLSALICYLIC ACID SRT [Concomitant]
     Dosage: 75 MG, UNK
  6. PAROXETINE HCL [Concomitant]
     Dosage: 30 MG, UNK
  7. DIPYRIDAMOLE [Concomitant]
     Dosage: 400 MG, UNK
  8. CLOZARIL [Suspect]
     Dosage: 250 MG, BID
     Route: 048
  9. SIMVASTATIN [Concomitant]
     Dosage: 40 MG, UNK
  10. METFORMIN HCL [Concomitant]
     Dosage: 1700 MG, UNK
  11. TROSPIUM CHLORIDE [Concomitant]
     Dosage: 20 MG, BID

REACTIONS (4)
  - ANKLE FRACTURE [None]
  - ASTHENIA [None]
  - FALL [None]
  - LOWER LIMB FRACTURE [None]
